FAERS Safety Report 5813721-0 (Version None)
Quarter: 2008Q3

REPORT INFORMATION
  Report Type: 
  Country: None (occurrence: None)
  Receive Date: 20080717
  Receipt Date: 20080707
  Transmission Date: 20090109
  Serious: Yes (Hospitalization)
  Sender: FDA-Public Use
  Company Number: CA-ROCHE-565853

PATIENT
  Sex: Male
  Weight: 90 kg

DRUGS (3)
  1. PEGASYS [Suspect]
     Route: 058
     Dates: start: 20080229, end: 20080511
  2. COPEGUS [Suspect]
     Route: 048
     Dates: start: 20080229, end: 20080511
  3. 1 CONCOMITANT DRUG [Concomitant]
     Indication: BACK PAIN
     Dosage: DOSE: 1 X OD; DRUG NAME RATIO-CODEINE
     Route: 048
     Dates: start: 20050101

REACTIONS (2)
  - ANAEMIA [None]
  - VARICES OESOPHAGEAL [None]
